FAERS Safety Report 17854706 (Version 1)
Quarter: 2020Q2

REPORT INFORMATION
  Report Type: Report from Study
  Country: IE (occurrence: IE)
  Receive Date: 20200603
  Receipt Date: 20200603
  Transmission Date: 20200714
  Serious: Yes (Other)
  Sender: FDA-Public Use
  Company Number: IE-JNJFOC-20200424307

PATIENT
  Age: 89 Year
  Sex: Female

DRUGS (8)
  1. STELARA [Suspect]
     Active Substance: USTEKINUMAB
     Dosage: LAST ADMINISTERED ON 09-DEC-2019
     Route: 058
     Dates: start: 20150908
  2. STELARA [Suspect]
     Active Substance: USTEKINUMAB
     Dosage: LAST ADMINISTERED ON 09-DEC-2019
     Route: 058
     Dates: start: 20191209
  3. FYBOGEL [Concomitant]
     Active Substance: PLANTAGO OVATA SEED
     Route: 050
  4. LOSARTAN. [Concomitant]
     Active Substance: LOSARTAN
     Route: 050
  5. MOREPA [Concomitant]
     Route: 050
  6. SOLPADEINE (ACETAMINOPHEN\CODEINE) [Concomitant]
     Active Substance: ACETAMINOPHEN\CODEINE PHOSPHATE
     Route: 050
  7. STELARA [Suspect]
     Active Substance: USTEKINUMAB
     Indication: PSORIASIS
     Dosage: LAST ADMINISTERED ON 09-DEC-2019
     Route: 058
     Dates: start: 20140709
  8. PARACETAMOL [Concomitant]
     Active Substance: ACETAMINOPHEN

REACTIONS (1)
  - Lower respiratory tract infection [Unknown]

NARRATIVE: CASE EVENT DATE: 202003
